FAERS Safety Report 5154913-6 (Version None)
Quarter: 2006Q4

REPORT INFORMATION
  Report Type: 
  Country: None (occurrence: None)
  Receive Date: 20061121
  Receipt Date: 20061113
  Transmission Date: 20070319
  Serious: Yes (Other)
  Sender: FDA-Public Use
  Company Number: US-NOVOPROD-258541

PATIENT
  Age: 69 Year
  Sex: Female
  Weight: 72.562 kg

DRUGS (2)
  1. NOVOLOG MIX 70/30 [Suspect]
     Dosage: 10 IU, QD
     Route: 058
     Dates: start: 20060501, end: 20060501
  2. NOVOLOG MIX 70/30 [Suspect]
     Dosage: UNKNOWN
     Route: 058
     Dates: start: 20060601, end: 20060601

REACTIONS (9)
  - DRUG HYPERSENSITIVITY [None]
  - DYSPNOEA [None]
  - FEELING HOT [None]
  - HEART RATE INCREASED [None]
  - HYPERHIDROSIS [None]
  - INJECTION SITE IRRITATION [None]
  - MALAISE [None]
  - NAUSEA [None]
  - WHEEZING [None]
